FAERS Safety Report 9275777 (Version 1)
Quarter: 2012Q4

REPORT INFORMATION
  Report Type: Spontaneous
  Country: DE (occurrence: None)
  Receive Date: 20121109
  Receipt Date: 20121109
  Transmission Date: 20130627
  Serious: Yes (Other)
  Sender: FDA-Public Use
  Company Number: 2011S1000773

PATIENT
  Age: 78 Year
  Sex: Male
  Weight: 70 kg

DRUGS (4)
  1. CUBICIN (DAPTOMYCIN) [Suspect]
     Indication: OSTEOMYELITIS
     Dosage: Q48H
     Dates: start: 20110815, end: 20110904
  2. CUBICIN (DAPTOMYCIN) [Suspect]
     Indication: ABSCESS
     Dosage: Q48H
     Dates: start: 20110815, end: 20110904
  3. CUBICIN (DAPTOMYCIN) [Suspect]
     Dosage: Q48H
     Dates: start: 20110815, end: 20110904
  4. LEVOFLOXACIN [Concomitant]

REACTIONS (1)
  - Blood creatinine increased [None]
